FAERS Safety Report 7529433-1 (Version None)
Quarter: 2011Q2

REPORT INFORMATION
  Report Type: 
  Country: None (occurrence: None)
  Receive Date: 20110531
  Receipt Date: 20110517
  Transmission Date: 20111010
  Serious: Yes (Hospitalization, Other)
  Sender: FDA-Public Use
  Company Number: 2011MA006010

PATIENT
  Age: 17 Year
  Sex: Male

DRUGS (1)
  1. BUPROPION HYDROCHLORIDE EXTENDED RELEASE TABLETS (XL), 150MG (ONCE A D [Suspect]
     Indication: DEPRESSION
     Dosage: 150 MG

REACTIONS (9)
  - HALLUCINATION, VISUAL [None]
  - HEART RATE INCREASED [None]
  - CONFUSIONAL STATE [None]
  - OVERDOSE [None]
  - FORMICATION [None]
  - DEPRESSION [None]
  - SOMATIC HALLUCINATION [None]
  - GRAND MAL CONVULSION [None]
  - ABDOMINAL DISCOMFORT [None]
